FAERS Safety Report 18850149 (Version 1)
Quarter: 2021Q1

REPORT INFORMATION
  Report Type: Report from Study
  Country: US (occurrence: US)
  Receive Date: 20210205
  Receipt Date: 20210205
  Transmission Date: 20210420
  Serious: Yes (Hospitalization)
  Sender: FDA-Public Use
  Company Number: US-ACADIA PHARMACEUTICALS INC.-ACA-2021-PIM-000411

PATIENT
  Sex: Female

DRUGS (7)
  1. ALGAL 900 DHA [Concomitant]
  2. EXELON [Concomitant]
     Active Substance: RIVASTIGMINE TARTRATE
  3. CYMBALTA [Concomitant]
     Active Substance: DULOXETINE HYDROCHLORIDE
  4. DEPLIN [Concomitant]
     Active Substance: LEVOMEFOLATE CALCIUM
  5. NUPLAZID [Suspect]
     Active Substance: PIMAVANSERIN TARTRATE
     Indication: PARKINSON^S DISEASE
     Dosage: 34 MILLIGRAM, QD
     Route: 048
     Dates: start: 201907
  6. REMERON [Concomitant]
     Active Substance: MIRTAZAPINE
  7. CARAFATE [Concomitant]
     Active Substance: SUCRALFATE

REACTIONS (1)
  - COVID-19 [Unknown]
